FAERS Safety Report 12212336 (Version 1)
Quarter: 2016Q1

REPORT INFORMATION
  Report Type: Spontaneous
  Country: US (occurrence: US)
  Receive Date: 20160325
  Receipt Date: 20160325
  Transmission Date: 20160526
  Serious: No
  Sender: FDA-Public Use
  Company Number: US-DEP_02569_2015

PATIENT
  Age: 77 Year
  Sex: Female
  Weight: 43 kg

DRUGS (13)
  1. SYNTHROID [Concomitant]
     Active Substance: LEVOTHYROXINE SODIUM
     Dosage: DF
  2. DICLOFENAC [Concomitant]
     Active Substance: DICLOFENAC
     Dosage: DF
  3. FISH OIL [Concomitant]
     Active Substance: FISH OIL
     Dosage: DF
  4. GRALISE [Suspect]
     Active Substance: GABAPENTIN
     Indication: NEURALGIA
     Dosage: SAMPLE PACK
     Route: 048
     Dates: start: 20150227, end: 20150227
  5. ZALEPLON. [Concomitant]
     Active Substance: ZALEPLON
     Dosage: DF
  6. MULTIVITAMIN [Concomitant]
     Active Substance: VITAMINS
     Dosage: DF
  7. BACLOFEN. [Concomitant]
     Active Substance: BACLOFEN
     Dosage: DF
  8. BUPAP [Concomitant]
     Active Substance: ACETAMINOPHEN\BUTALBITAL
     Dosage: DF
  9. ROPINIROLE. [Concomitant]
     Active Substance: ROPINIROLE
     Dosage: DF
  10. ZOFRAN [Concomitant]
     Active Substance: ONDANSETRON HYDROCHLORIDE
     Dosage: DF
  11. MIRALAX [Concomitant]
     Active Substance: POLYETHYLENE GLYCOL 3350
     Dosage: DF
  12. GRALISE [Suspect]
     Active Substance: GABAPENTIN
     Indication: BACK PAIN
     Dosage: SAMPLE PACK
     Route: 048
     Dates: start: 20150227, end: 20150227
  13. TYLENOL [Concomitant]
     Active Substance: ACETAMINOPHEN
     Dosage: DF

REACTIONS (5)
  - Vertigo [Recovered/Resolved]
  - Off label use [Recovered/Resolved]
  - Gait disturbance [Recovered/Resolved]
  - Dizziness [Recovered/Resolved]
  - Disorientation [Recovered/Resolved]

NARRATIVE: CASE EVENT DATE: 20150228
